FAERS Safety Report 7144802-X (Version None)
Quarter: 2010Q4

REPORT INFORMATION
  Report Type: 
  Country: None (occurrence: None)
  Receive Date: 20101112
  Receipt Date: 20100812
  Transmission Date: 20110411
  Serious: Yes (Other)
  Sender: FDA-Public Use
  Company Number: 1000015692

PATIENT
  Sex: Female

DRUGS (3)
  1. SAVELLA [Suspect]
     Dosage: SEE IMAGE
     Route: 048
  2. SAVELLA [Suspect]
     Dosage: SEE IMAGE
     Route: 048
  3. SAVELLA [Suspect]
     Dosage: SEE IMAGE
     Route: 048

REACTIONS (2)
  - HEADACHE [None]
  - HYPERTENSION [None]
